FAERS Safety Report 5263527-9 (Version None)
Quarter: 2007Q1

REPORT INFORMATION
  Report Type: 
  Country: None (occurrence: None)
  Receive Date: 20070312
  Receipt Date: 20070312
  Transmission Date: 20070707
  Serious: No
  Sender: FDA-Public Use
  Company Number: None

PATIENT

DRUGS (2)
  1. BD BLUNT FILL NEEDLE [Suspect]
     Dosage: NEEDLE 18 G X 1.5 INCH
  2. NEXIUM [Suspect]
     Dosage: INJECTABLE  VIAL

REACTIONS (2)
  - MEDICATION ERROR [None]
  - PHARMACEUTICAL PRODUCT COMPLAINT [None]
